FAERS Safety Report 8836248 (Version 1)
Quarter: 2012Q4

REPORT INFORMATION
  Report Type: 
  Country: US (occurrence: US)
  Receive Date: 20121011
  Receipt Date: 20121011
  Transmission Date: 20130627
  Serious: No
  Sender: FDA-Public Use
  Company Number: US-TEVA-362114USA

PATIENT
  Sex: Male

DRUGS (1)
  1. TREANDA [Suspect]
     Dates: start: 20120924

REACTIONS (2)
  - Creatinine renal clearance increased [Unknown]
  - Nausea [Unknown]
